FAERS Safety Report 4879139-2 (Version None)
Quarter: 2006Q1

REPORT INFORMATION
  Report Type: 
  Country: None (occurrence: None)
  Receive Date: 20060112
  Receipt Date: 20051117
  Transmission Date: 20060701
  Serious: Yes (Death)
  Sender: FDA-Public Use
  Company Number: SE-ROCHE-425167

PATIENT
  Age: 37 Year
  Sex: Female

DRUGS (14)
  1. CYMEVENE [Suspect]
     Dosage: CYMEVENE POWDER FOR SOLUTION FOR INFUSION 500 MG
     Route: 042
     Dates: start: 20050104, end: 20050105
  2. VFEND [Suspect]
     Indication: FUNGAL INFECTION
     Dosage: FILM COATED TABLET
     Route: 048
     Dates: start: 20050103, end: 20050106
  3. SANDIMMUNE [Suspect]
     Indication: DRUG USE FOR UNKNOWN INDICATION
     Dosage: DRUG NAME REPORTED AS SANDIMUN NEORAL.
     Route: 048
  4. SANDIMMUNE [Suspect]
     Route: 048
  5. SANDIMMUNE [Suspect]
     Dosage: ROUTE REPORTED AS INTRAVENOUS
     Route: 048
  6. MABTHERA [Suspect]
     Dosage: DOSAGE REGIMEN REPORTED AS ^750 MG X 2^
     Route: 042
     Dates: start: 20050105, end: 20050111
  7. SOLU-CORTEF [Concomitant]
  8. TAVEGYL [Concomitant]
  9. PREDNISOLONE [Concomitant]
  10. MYCOSTATIN [Concomitant]
  11. FUROSEMIDE [Concomitant]
  12. MERONEM [Concomitant]
  13. OMEPRAZOLE [Concomitant]
  14. URSO FALK [Concomitant]

REACTIONS (10)
  - ABDOMINAL PAIN [None]
  - ANAPHYLACTIC REACTION [None]
  - CHOLESTASIS [None]
  - CONFUSIONAL STATE [None]
  - DEPRESSED LEVEL OF CONSCIOUSNESS [None]
  - HALLUCINATION [None]
  - HYPERBILIRUBINAEMIA [None]
  - HYPOTONIA [None]
  - MULTI-ORGAN FAILURE [None]
  - RENAL FAILURE [None]
